FAERS Safety Report 5661147-5 (Version None)
Quarter: 2008Q1

REPORT INFORMATION
  Report Type: 
  Country: None (occurrence: None)
  Receive Date: 20080306
  Receipt Date: 20080221
  Transmission Date: 20080703
  Serious: Yes (Disabling)
  Sender: FDA-Public Use
  Company Number: 2008RR-13241

PATIENT
  Age: 35 Year
  Sex: Female

DRUGS (5)
  1. FLUOXETINE [Suspect]
     Dosage: 10 MG, QD; 20 MG, QD; 10 MG, QD, ORAL
     Route: 048
     Dates: start: 20070801
  2. FLUOXETINE [Suspect]
     Dosage: 10 MG, QD; 20 MG, QD; 10 MG, QD, ORAL
     Route: 048
     Dates: start: 20070901
  3. REMERON [Suspect]
     Dosage: 15 MG, QD, ORAL; 30MG D ,ORAL
     Route: 048
     Dates: start: 20070301
  4. REMERON [Suspect]
     Dosage: 15 MG, QD, ORAL; 30MG D ,ORAL
     Route: 048
     Dates: start: 20070401
  5. PAROXETINE HCL [Concomitant]

REACTIONS (3)
  - ANXIETY [None]
  - DEPRESSION [None]
  - DRUG INEFFECTIVE [None]
